FAERS Safety Report 13598237 (Version 1)
Quarter: 2017Q2

REPORT INFORMATION
  Report Type: Spontaneous
  Country: FR (occurrence: FR)
  Receive Date: 20170531
  Receipt Date: 20170531
  Transmission Date: 20170830
  Serious: Yes (Disabling, Other)
  Sender: FDA-Public Use
  Company Number: FR-BAXTER-2017BAX021761

PATIENT
  Age: 66 Year
  Sex: Male

DRUGS (14)
  1. FLUDARABINE PHOSPHATE. [Suspect]
     Active Substance: FLUDARABINE PHOSPHATE
     Indication: CHRONIC LYMPHOCYTIC LEUKAEMIA
     Route: 042
  2. MABTHERA [Suspect]
     Active Substance: RITUXIMAB
     Dosage: LAST CYCLE OF CHEMOTHERAPY
     Route: 042
     Dates: start: 20170324, end: 20170324
  3. ZELITREX [Suspect]
     Active Substance: VALACYCLOVIR HYDROCHLORIDE
     Indication: PRODUCT USED FOR UNKNOWN INDICATION
     Route: 048
  4. LEDERFOLINE [Suspect]
     Active Substance: LEUCOVORIN CALCIUM
     Indication: PRODUCT USED FOR UNKNOWN INDICATION
     Route: 048
  5. FLUDARABINE PHOSPHATE. [Suspect]
     Active Substance: FLUDARABINE PHOSPHATE
     Dosage: LAST CYCLE OF CHEMOTHERAPY
     Route: 042
     Dates: start: 20170328, end: 20170328
  6. RASBURICASE [Suspect]
     Active Substance: RASBURICASE
     Indication: TUMOUR LYSIS SYNDROME
     Route: 065
     Dates: start: 20170402
  7. GLUCOSE [Suspect]
     Active Substance: DEXTROSE
     Indication: TUMOUR LYSIS SYNDROME
     Route: 065
     Dates: start: 20170402
  8. ENDOXAN 1000 MG, POUDRE POUR SOLUTION INJECTABLE [Suspect]
     Active Substance: CYCLOPHOSPHAMIDE
     Indication: CHRONIC LYMPHOCYTIC LEUKAEMIA
     Route: 042
  9. ENDOXAN 1000 MG, POUDRE POUR SOLUTION INJECTABLE [Suspect]
     Active Substance: CYCLOPHOSPHAMIDE
     Dosage: LAST CYCLE OF CHEMOTHERAPY
     Route: 042
     Dates: start: 20170328, end: 20170328
  10. MABTHERA [Suspect]
     Active Substance: RITUXIMAB
     Dosage: LAST CYCLE OF CHEMOTHERAPY
     Route: 042
     Dates: start: 20170323, end: 20170323
  11. BACTRIM [Suspect]
     Active Substance: SULFAMETHOXAZOLE\TRIMETHOPRIM
     Indication: PROPHYLAXIS
     Route: 048
  12. FASTURTEC [Suspect]
     Active Substance: RASBURICASE
     Indication: PROPHYLAXIS
     Dosage: BEFORE LAST CYCLE OF CHEMOTHERAPY
     Route: 042
     Dates: start: 20170323, end: 20170403
  13. INSULIN [Suspect]
     Active Substance: INSULIN NOS
     Indication: TUMOUR LYSIS SYNDROME
     Route: 065
     Dates: start: 20170402
  14. MABTHERA [Suspect]
     Active Substance: RITUXIMAB
     Indication: CHRONIC LYMPHOCYTIC LEUKAEMIA
     Route: 042

REACTIONS (7)
  - Hiccups [Unknown]
  - Optic neuritis [Not Recovered/Not Resolved]
  - Bicytopenia [Unknown]
  - Dehydration [Unknown]
  - Tumour lysis syndrome [Unknown]
  - Blindness [Not Recovered/Not Resolved]
  - Acute kidney injury [Recovering/Resolving]

NARRATIVE: CASE EVENT DATE: 20170402
